FAERS Safety Report 16767109 (Version 2)
Quarter: 2019Q3

REPORT INFORMATION
  Report Type: Spontaneous
  Country: DE (occurrence: DE)
  Receive Date: 20190903
  Receipt Date: 20190920
  Transmission Date: 20191005
  Serious: Yes (Other)
  Sender: FDA-Public Use
  Company Number: DE-AMGEN-DEUSP2019140465

PATIENT
  Age: 75 Year
  Sex: Male

DRUGS (4)
  1. XGEVA [Suspect]
     Active Substance: DENOSUMAB
     Indication: HORMONE-REFRACTORY PROSTATE CANCER
     Route: 065
  2. XGEVA [Suspect]
     Active Substance: DENOSUMAB
     Indication: PROSTATE CANCER METASTATIC
  3. SIMVASTATIN. [Concomitant]
     Active Substance: SIMVASTATIN
  4. TRENANTONE [Concomitant]
     Active Substance: LEUPROLIDE ACETATE

REACTIONS (1)
  - Postrenal failure [Unknown]
